FAERS Safety Report 15471825 (Version 1)
Quarter: 2018Q4

REPORT INFORMATION
  Report Type: Spontaneous
  Country: US (occurrence: US)
  Receive Date: 20181008
  Receipt Date: 20181008
  Transmission Date: 20190205
  Serious: Yes (Other)
  Sender: FDA-Public Use
  Company Number: US-PCCINC-2018-PEL-000339

PATIENT

DRUGS (1)
  1. GABLOFEN [Suspect]
     Active Substance: BACLOFEN
     Indication: CEREBRAL PALSY
     Dosage: 50 MICROGRAM, QD
     Route: 037

REACTIONS (2)
  - Product use issue [Unknown]
  - Staphylococcal infection [Recovered/Resolved]
